FAERS Safety Report 10184293 (Version 2)
Quarter: 2014Q3

REPORT INFORMATION
  Report Type: Spontaneous
  Country: US (occurrence: US)
  Receive Date: 20140520
  Receipt Date: 20140805
  Transmission Date: 20150326
  Serious: Yes (Other)
  Sender: FDA-Public Use
  Company Number: US-GILEAD-2014-0102935

PATIENT
  Age: 73 Year
  Sex: Male

DRUGS (3)
  1. FLOMAX [Suspect]
     Active Substance: TAMSULOSIN HYDROCHLORIDE
     Indication: PROSTATIC DISORDER
     Dosage: UNK
     Route: 065
  2. RANEXA [Suspect]
     Active Substance: RANOLAZINE
     Dosage: 1000 MG, UNK
     Route: 065
     Dates: start: 201102
  3. RANEXA [Suspect]
     Active Substance: RANOLAZINE
     Indication: PRODUCT USED FOR UNKNOWN INDICATION
     Dosage: 500 MG, UNK
     Route: 065
     Dates: start: 201004

REACTIONS (8)
  - Iridocyclitis [None]
  - Anterior chamber cell [None]
  - Papilloedema [Recovering/Resolving]
  - Visual impairment [Recovering/Resolving]
  - Corneal deposits [None]
  - Rheumatoid factor increased [None]
  - Tooth abscess [None]
  - Visual field tests abnormal [None]

NARRATIVE: CASE EVENT DATE: 201104
